FAERS Safety Report 6839336-3 (Version None)
Quarter: 2010Q3

REPORT INFORMATION
  Report Type: 
  Country: None (occurrence: None)
  Receive Date: 20100714
  Receipt Date: 20100701
  Transmission Date: 20110219
  Serious: Yes (Other)
  Sender: FDA-Public Use
  Company Number: PHHY2010US26176

PATIENT
  Sex: Female

DRUGS (2)
  1. RECLAST [Suspect]
     Dosage: UNK,UNK
     Route: 042
  2. CALCIUM [Concomitant]
     Dosage: UNK,UNK

REACTIONS (2)
  - MULTIPLE FRACTURES [None]
  - PARALYSIS [None]
